FAERS Safety Report 10698319 (Version 2)
Quarter: 2015Q1

REPORT INFORMATION
  Report Type: Spontaneous
  Country: US (occurrence: US)
  Receive Date: 20150108
  Receipt Date: 20150216
  Transmission Date: 20150721
  Serious: No
  Sender: FDA-Public Use
  Company Number: US-PFIZER INC-2015004858

PATIENT
  Age: 62 Year
  Sex: Female
  Weight: 72.56 kg

DRUGS (2)
  1. LYRICA [Suspect]
     Active Substance: PREGABALIN
     Dosage: UNK
  2. SAVELLA [Concomitant]
     Active Substance: MILNACIPRAN HYDROCHLORIDE

REACTIONS (6)
  - Anxiety [Unknown]
  - Hyperhidrosis [Unknown]
  - Tearfulness [Unknown]
  - Pyrexia [Unknown]
  - Hallucination [Unknown]
  - Nausea [Unknown]

NARRATIVE: CASE EVENT DATE: 20141220
